FAERS Safety Report 12711399 (Version 1)
Quarter: 2016Q3

REPORT INFORMATION
  Report Type: Spontaneous
  Country: US (occurrence: US)
  Receive Date: 20160902
  Receipt Date: 20160902
  Transmission Date: 20161109
  Serious: Yes (Other)
  Sender: FDA-Public Use
  Company Number: US-PFIZER INC-2016409230

PATIENT
  Age: 51 Year
  Sex: Male
  Weight: 90.72 kg

DRUGS (1)
  1. VIAGRA [Suspect]
     Active Substance: SILDENAFIL CITRATE
     Indication: ERECTILE DYSFUNCTION
     Dosage: 1 DF (TABLET), UNK
     Route: 048
     Dates: start: 20160828

REACTIONS (1)
  - Penile haemorrhage [Unknown]

NARRATIVE: CASE EVENT DATE: 20160828
